FAERS Safety Report 9420122 (Version 1)
Quarter: 2013Q3

REPORT INFORMATION
  Report Type: Spontaneous
  Country: US (occurrence: None)
  Receive Date: 20130724
  Receipt Date: 20130724
  Transmission Date: 20140515
  Serious: No
  Sender: FDA-Public Use
  Company Number: None

PATIENT
  Age: 64 Year
  Sex: Female

DRUGS (1)
  1. STIVARGA [Suspect]
     Indication: COLON CANCER
     Dosage: 120 MG QDX21DS PO
     Route: 048
     Dates: start: 20130416, end: 201307

REACTIONS (3)
  - Skin exfoliation [None]
  - Stomatitis [None]
  - Drug ineffective [None]
